FAERS Safety Report 5305157-6 (Version None)
Quarter: 2007Q2

REPORT INFORMATION
  Report Type: 
  Country: None (occurrence: None)
  Receive Date: 20070416
  Receipt Date: 20070403
  Transmission Date: 20071010
  Serious: Yes (Hospitalization)
  Sender: FDA-Public Use
  Company Number: US019818

PATIENT
  Age: 34 Year
  Sex: Female

DRUGS (2)
  1. MODAFINIL [Suspect]
     Indication: POOR QUALITY SLEEP
     Dosage: 200 MG QD ORAL
     Route: 048
  2. TRANYLCYPROMINE SULFATE [Suspect]
     Indication: DEPRESSION
     Dosage: 80 MG QD

REACTIONS (11)
  - ABNORMAL BEHAVIOUR [None]
  - CHOREA [None]
  - CONFUSIONAL STATE [None]
  - DRUG INTERACTION [None]
  - DYSKINESIA [None]
  - HYPERTHERMIA [None]
  - OPISTHOTONUS [None]
  - RESTLESSNESS [None]
  - SEROTONIN SYNDROME [None]
  - TARDIVE DYSKINESIA [None]
  - TIC [None]
